FAERS Safety Report 7606535-2 (Version None)
Quarter: 2011Q3

REPORT INFORMATION
  Report Type: 
  Country: None (occurrence: None)
  Receive Date: 20110713
  Receipt Date: 20110711
  Transmission Date: 20111222
  Serious: Yes (Other)
  Sender: FDA-Public Use
  Company Number: JP-PFIZER INC-2011155285

PATIENT
  Age: 74 Year
  Sex: Female

DRUGS (2)
  1. LYRICA [Suspect]
     Dosage: 75 MG, 2X/DAY
     Dates: start: 20110708
  2. LYRICA [Suspect]
     Dosage: 75 MG, 1X/DAY
     Dates: end: 20110707

REACTIONS (2)
  - SOMNOLENCE [None]
  - CREATININE RENAL CLEARANCE DECREASED [None]
